FAERS Safety Report 4884406-2 (Version None)
Quarter: 2006Q1

REPORT INFORMATION
  Report Type: 
  Country: None (occurrence: None)
  Receive Date: 20060117
  Receipt Date: 20060117
  Transmission Date: 20060701
  Serious: No
  Sender: FDA-Public Use
  Company Number: None

PATIENT
  Sex: Female
  Weight: 94.5 kg

DRUGS (4)
  1. CYCLOPHOSPHAMIDE [Suspect]
     Indication: BREAST CANCER
     Dosage: SEE IMAGE
     Dates: start: 20051219, end: 20051219
  2. TAXOTERE [Suspect]
     Dosage: SEE IMAGE
     Dates: start: 20051219, end: 20051219
  3. DOXORUBICIN HCL [Suspect]
     Dosage: SEE IMAGE
     Dates: start: 20051219, end: 20051219
  4. DECADRON [Concomitant]

REACTIONS (1)
  - HYPERGLYCAEMIA [None]
